FAERS Safety Report 9865533 (Version 1)
Quarter: 2014Q1

REPORT INFORMATION
  Report Type: Spontaneous
  Country: US (occurrence: US)
  Receive Date: 20140203
  Receipt Date: 20140203
  Transmission Date: 20141002
  Serious: No
  Sender: FDA-Public Use
  Company Number: US-ALLERGAN-1305164US

PATIENT
  Age: 86 Year
  Sex: Female

DRUGS (4)
  1. RESTASIS [Suspect]
     Indication: DRY EYE
     Dosage: 2 GTT, BID
     Route: 047
     Dates: start: 20130312
  2. LUMIGAN [Concomitant]
     Indication: GLAUCOMA
     Dosage: UNK
     Dates: start: 2005
  3. DORZOL/TIMOL [Concomitant]
     Indication: GLAUCOMA
     Dosage: UNK
     Dates: start: 2005
  4. BROMINIDINE [Concomitant]
     Indication: GLAUCOMA
     Dosage: UNK
     Dates: start: 2005

REACTIONS (4)
  - Eye irritation [Recovering/Resolving]
  - Ocular hyperaemia [Recovering/Resolving]
  - Vision blurred [Recovering/Resolving]
  - Eye swelling [Recovering/Resolving]
